FAERS Safety Report 25771518 (Version 1)
Quarter: 2025Q3

REPORT INFORMATION
  Report Type: Spontaneous
  Country: US (occurrence: US)
  Receive Date: 20250908
  Receipt Date: 20250908
  Transmission Date: 20251020
  Serious: No
  Sender: DOMPE FARMACEUTICI
  Company Number: US-FARMAPROD-202504-1392

PATIENT
  Sex: Male
  Weight: 80.74 kg

DRUGS (10)
  1. OXERVATE [Suspect]
     Active Substance: CENEGERMIN-BKBJ
     Indication: Neurotrophic keratopathy
     Route: 047
     Dates: start: 20250331
  2. LISINOPRIL [Concomitant]
     Active Substance: LISINOPRIL
  3. VITAMIN D3 [Concomitant]
     Active Substance: CHOLECALCIFEROL
  4. HERBALS\LINSEED OIL [Concomitant]
     Active Substance: HERBALS\LINSEED OIL
  5. JARDIANCE [Concomitant]
     Active Substance: EMPAGLIFLOZIN
  6. JARDIANCE [Concomitant]
     Active Substance: EMPAGLIFLOZIN
  7. GLIMEPIRIDE [Concomitant]
     Active Substance: GLIMEPIRIDE
  8. GLIMEPIRIDE [Concomitant]
     Active Substance: GLIMEPIRIDE
  9. METFORMIN HYDROCHLORIDE [Concomitant]
     Active Substance: METFORMIN HYDROCHLORIDE
  10. METFORMIN HYDROCHLORIDE [Concomitant]
     Active Substance: METFORMIN HYDROCHLORIDE

REACTIONS (5)
  - Ocular discomfort [Unknown]
  - Headache [Unknown]
  - Foreign body sensation in eyes [Unknown]
  - Sinus disorder [Unknown]
  - Treatment noncompliance [Unknown]
